FAERS Safety Report 15457233 (Version 3)
Quarter: 2019Q1

REPORT INFORMATION
  Report Type: Report from Study
  Country: US (occurrence: US)
  Receive Date: 20181002
  Receipt Date: 20190131
  Transmission Date: 20190417
  Serious: Yes (Hospitalization)
  Sender: FDA-Public Use
  Company Number: US-ACTELION-A-NJ2017-165083

PATIENT
  Age: 64 Year
  Sex: Female
  Weight: 56.24 kg

DRUGS (3)
  1. VELETRI [Suspect]
     Active Substance: EPOPROSTENOL
     Indication: PULMONARY HYPERTENSION
     Dosage: 30 NG/KG, PER MIN
     Route: 042
  2. VELETRI [Suspect]
     Active Substance: EPOPROSTENOL
     Dosage: 22 NG/KG, PER MIN
     Route: 042
  3. ADCIRCA [Concomitant]
     Active Substance: TADALAFIL

REACTIONS (21)
  - Nasal congestion [Unknown]
  - Nasopharyngitis [Unknown]
  - Unevaluable event [Unknown]
  - Catheter site pruritus [Recovering/Resolving]
  - Cough [Unknown]
  - Rhinorrhoea [Unknown]
  - Palpitations [Unknown]
  - Pain in jaw [Not Recovered/Not Resolved]
  - Influenza [Unknown]
  - Weight decreased [Unknown]
  - Headache [Unknown]
  - Diarrhoea [Unknown]
  - Extrasystoles [Unknown]
  - Dermatitis contact [Unknown]
  - Decreased appetite [Unknown]
  - Drug interaction [Unknown]
  - Throat irritation [Unknown]
  - Fatigue [Unknown]
  - Dyspnoea exertional [Unknown]
  - Pain in extremity [Not Recovered/Not Resolved]
  - Pain [Unknown]

NARRATIVE: CASE EVENT DATE: 201712
